FAERS Safety Report 4399255-1 (Version None)
Quarter: 2004Q3

REPORT INFORMATION
  Report Type: 
  Country: None (occurrence: None)
  Receive Date: 20040712
  Receipt Date: 20040629
  Transmission Date: 20050211
  Serious: Yes (Hospitalization, Other)
  Sender: FDA-Public Use
  Company Number: 2004044086

PATIENT
  Age: 46 Year
  Sex: Female

DRUGS (17)
  1. GEODON [Suspect]
     Indication: DEPRESSION
     Dosage: 40 MG (20 MG, 2 IN 1 D), ORAL
     Route: 048
  2. LIPITOR [Suspect]
     Indication: BLOOD CHOLESTEROL INCREASED
  3. ZOLOFT [Suspect]
     Indication: ILL-DEFINED DISORDER
     Dates: start: 20040301
  4. VALPROATE SODIUM [Suspect]
     Indication: ILL-DEFINED DISORDER
     Dates: end: 20020901
  5. TOPIRAMATE [Suspect]
     Indication: ILL-DEFINED DISORDER
  6. QUETIAPINE FUMARATE (QUETIAPINE FUMARATE) [Suspect]
     Indication: INSOMNIA
     Dosage: 200 MG (UNK, 1 IN 1 D)
     Dates: start: 20021201
  7. LITHIUM CARBONATE [Suspect]
     Indication: ILL-DEFINED DISORDER
     Dosage: ORAL
     Route: 048
     Dates: start: 20030501, end: 20030701
  8. DOCUSATE (DOCUSATE) [Concomitant]
  9. TRAZODONE HCL [Concomitant]
  10. TOCOPHEROL CONCENTRATE CAP [Concomitant]
  11. HYDROXYZINE EMBONATE (HYDROXYZINE EMBONATE) [Concomitant]
  12. ESTRADIOL [Concomitant]
  13. ESTRATEST H.S. [Concomitant]
  14. DESLORATADINE (DESLORATADINE) [Concomitant]
  15. CALCIUM (CALCIUM) [Concomitant]
  16. CENTRUM (MINERALS NOS, VITAMINS NOS) [Concomitant]
  17. BUPROPION HYDROCHLORIDE [Concomitant]

REACTIONS (20)
  - AFFECTIVE DISORDER [None]
  - ANXIETY [None]
  - ARTERIOSCLEROSIS [None]
  - BLOOD CHOLESTEROL INCREASED [None]
  - CONDITION AGGRAVATED [None]
  - DEPRESSION [None]
  - EYE DISORDER [None]
  - FATIGUE [None]
  - FEELING ABNORMAL [None]
  - HEADACHE [None]
  - INSOMNIA [None]
  - INTENTIONAL SELF-INJURY [None]
  - MEDICATION ERROR [None]
  - SELF-INJURIOUS IDEATION [None]
  - SUICIDAL IDEATION [None]
  - TONGUE ULCERATION [None]
  - TREATMENT NONCOMPLIANCE [None]
  - TREMOR [None]
  - WEIGHT DECREASED [None]
  - WEIGHT INCREASED [None]
